FAERS Safety Report 8095210-9 (Version None)
Quarter: 2012Q1

REPORT INFORMATION
  Report Type: 
  Country: None (occurrence: None)
  Receive Date: 20120129
  Receipt Date: 20111228
  Transmission Date: 20120608
  Serious: No
  Sender: FDA-Public Use
  Company Number: US-ABBOTT-11P-163-0887797-00

PATIENT
  Age: 15 Year
  Sex: Male

DRUGS (4)
  1. ABILIFY [Concomitant]
     Indication: ATTENTION DEFICIT/HYPERACTIVITY DISORDER
  2. HUMIRA [Suspect]
     Indication: CROHN'S DISEASE
     Dates: start: 20111006
  3. ZOLOFT [Concomitant]
     Indication: ANXIETY
  4. VYVANSE [Concomitant]
     Indication: ATTENTION DEFICIT/HYPERACTIVITY DISORDER

REACTIONS (2)
  - MOOD SWINGS [None]
  - ANGER [None]
